FAERS Safety Report 13457099 (Version 5)
Quarter: 2018Q3

REPORT INFORMATION
  Report Type: Report from Study
  Country: US (occurrence: US)
  Receive Date: 20170419
  Receipt Date: 20180824
  Transmission Date: 20181010
  Serious: Yes (Disabling, Other)
  Sender: FDA-Public Use
  Company Number: PHHY2016US176292

PATIENT
  Age: 62 Year
  Sex: Male
  Weight: 93.42 kg

DRUGS (4)
  1. TAMSULOISIN [Concomitant]
     Indication: BENIGN PROSTATIC HYPERPLASIA
     Dosage: 0.4 MG, QD
     Route: 048
     Dates: start: 20141204
  2. AMPYRA [Concomitant]
     Active Substance: DALFAMPRIDINE
     Indication: GAIT DISTURBANCE
     Dosage: 10 MG, BID
     Route: 048
     Dates: start: 20160614
  3. NORVASC [Concomitant]
     Active Substance: AMLODIPINE BESYLATE
     Indication: HYPERTENSION
     Dosage: 5 MG, QD
     Route: 048
     Dates: start: 20161104
  4. GILENYA [Suspect]
     Active Substance: FINGOLIMOD HYDROCHLORIDE
     Indication: MULTIPLE SCLEROSIS
     Dosage: 0.5 MG, QD
     Route: 048

REACTIONS (15)
  - Cataract nuclear [Unknown]
  - Somnolence [Recovered/Resolved]
  - Melanocytic naevus [Unknown]
  - Insomnia [Unknown]
  - Cervical cord compression [Recovered/Resolved]
  - White blood cell count decreased [Unknown]
  - Retinal drusen [Unknown]
  - Vertigo [Unknown]
  - Dry eye [Unknown]
  - Dizziness [Unknown]
  - Asthenia [Unknown]
  - Actinic keratosis [Unknown]
  - Nervousness [Unknown]
  - Pain [Unknown]
  - Alanine aminotransferase increased [Unknown]

NARRATIVE: CASE EVENT DATE: 20160922
